FAERS Safety Report 7493496-2 (Version None)
Quarter: 2011Q2

REPORT INFORMATION
  Report Type: 
  Country: None (occurrence: None)
  Receive Date: 20110520
  Receipt Date: 20110509
  Transmission Date: 20111010
  Serious: Yes (Other)
  Sender: FDA-Public Use
  Company Number: US-SANOFI-AVENTIS-2011SA028829

PATIENT
  Age: 24 Year
  Sex: Male

DRUGS (8)
  1. PREDNISONE [Concomitant]
     Indication: LUPUS NEPHRITIS
     Route: 065
     Dates: start: 20070101
  2. HYDROXYCHLOROQUINE SULFATE [Suspect]
     Indication: LUPUS NEPHRITIS
     Route: 065
     Dates: start: 20080201, end: 20091001
  3. CYCLOPHOSPHAMIDE [Concomitant]
     Indication: LUPUS NEPHRITIS
     Route: 065
     Dates: start: 20070101
  4. SOLU-MEDROL [Concomitant]
     Indication: LUPUS NEPHRITIS
     Route: 065
     Dates: start: 20090501
  5. CYCLOPHOSPHAMIDE [Concomitant]
     Route: 065
     Dates: start: 20090501
  6. CELLCEPT [Concomitant]
     Indication: LUPUS NEPHRITIS
     Route: 048
     Dates: start: 20080201, end: 20091001
  7. PREDNISONE [Concomitant]
     Route: 065
     Dates: start: 20080201
  8. CELLCEPT [Concomitant]
     Route: 048
     Dates: start: 20091001

REACTIONS (7)
  - BLOOD CREATININE INCREASED [None]
  - LIPIDOSIS [None]
  - RENAL IMPAIRMENT [None]
  - PROTEINURIA [None]
  - PNEUMATURIA [None]
  - NAUSEA [None]
  - VOMITING [None]
